FAERS Safety Report 8230401-5 (Version None)
Quarter: 2012Q1

REPORT INFORMATION
  Report Type: 
  Country: None (occurrence: None)
  Receive Date: 20120320
  Receipt Date: 20120308
  Transmission Date: 20120608
  Serious: Yes (Other)
  Sender: FDA-Public Use
  Company Number: AUR-APL-2012-01442

PATIENT
  Age: 62 Year
  Sex: Female

DRUGS (19)
  1. DIAZEPAM [Concomitant]
     Indication: PRODUCT USED FOR UNKNOWN INDICATION
     Dosage: 10 MG (5 MG, 2 IN 1 D)
  2. METOPROLOL TARTRATE [Suspect]
     Indication: PRODUCT USED FOR UNKNOWN INDICATION
     Dosage: (47.5 MG, 1 D)
  3. BISPHOSPHONATE (BISPHOSPHONATES) [Concomitant]
  4. SIMVASTATIN [Suspect]
     Indication: PRODUCT USED FOR UNKNOWN INDICATION
     Dosage: (40 MG, 1 D)
  5. FENTANYL [Suspect]
     Indication: PRODUCT USED FOR UNKNOWN INDICATION
     Dosage: (75 MCG, 72 HR), TRANSDERMAL
     Route: 062
  6. ANASTROZOLE [Suspect]
     Indication: HORMONE THERAPY
     Dosage: (1 D)
  7. MACROGOL (MACROGOL) [Suspect]
     Indication: PRODUCT USED FOR UNKNOWN INDICATION
     Dosage: (1 D)
  8. AMITRIPTYLINE HCL [Suspect]
     Indication: PRODUCT USED FOR UNKNOWN INDICATION
     Dosage: (100 MG, 1 D)
  9. ASPIRIN [Suspect]
     Indication: PRODUCT USED FOR UNKNOWN INDICATION
     Dosage: (100 MG, 1 D)
  10. FULVESTRANT (FULVESTRANT) [Concomitant]
  11. EXEMESTANE [Concomitant]
  12. GABAPENTIN [Suspect]
     Indication: BONE PAIN
     Dosage: (900 MG, 1 D)
  13. METAMIZOLE (METAMIZOLE) [Suspect]
     Indication: PRODUCT USED FOR UNKNOWN INDICATION
     Dosage: (4 GM, 1 D)
  14. DOXORUBICIN HCL [Concomitant]
  15. NITROGLYCERIN [Suspect]
     Indication: PRODUCT USED FOR UNKNOWN INDICATION
     Dosage: (1 D), TRANSDERMAL
     Route: 062
  16. ALPRAZOLAM [Suspect]
     Indication: PRODUCT USED FOR UNKNOWN INDICATION
     Dosage: (0.5 MG, 1 D)
  17. FLUOXETINE [Suspect]
     Indication: PRODUCT USED FOR UNKNOWN INDICATION
     Dosage: (40 MG, 1 D)
  18. HYDROMORPHONE HCL [Suspect]
     Indication: BONE PAIN
     Dosage: (5.2 MG), ORAL
     Route: 048
  19. LEVOTHYROXINE SODIUM [Suspect]
     Indication: PRODUCT USED FOR UNKNOWN INDICATION
     Dosage: (150 MCG, 1 D)

REACTIONS (4)
  - DELIRIUM [None]
  - RENAL FAILURE [None]
  - PNEUMONIA [None]
  - SEPSIS [None]
